FAERS Safety Report 10078315 (Version 1)
Quarter: 2014Q2

REPORT INFORMATION
  Report Type: Spontaneous
  Country: SE (occurrence: SE)
  Receive Date: 20140415
  Receipt Date: 20140415
  Transmission Date: 20141212
  Serious: Yes (Life-Threatening, Hospitalization, Other)
  Sender: FDA-Public Use
  Company Number: SE-009507513-1404SWE008394

PATIENT
  Age: 28 Year
  Sex: Female

DRUGS (1)
  1. NUVARING [Suspect]
     Dosage: UNK
     Route: 067

REACTIONS (2)
  - Cardiac arrest [Not Recovered/Not Resolved]
  - Pulmonary embolism [Not Recovered/Not Resolved]
